FAERS Safety Report 9190386 (Version 1)
Quarter: 2013Q1

REPORT INFORMATION
  Report Type: Spontaneous
  Country: US (occurrence: None)
  Receive Date: 20120703
  Receipt Date: 20120703
  Transmission Date: 20140127
  Serious: Yes (Other)
  Sender: FDA-Public Use
  Company Number: PHEH2012US005854

PATIENT
  Age: 30 Year
  Sex: Female
  Weight: 68.95 kg

DRUGS (5)
  1. GILENYA (FTY) CAPSULE [Suspect]
     Dosage: OUNCE
     Route: 048
     Dates: start: 201001, end: 20111219
  2. FLEXERIL (CYCLOBENZAPRINE HYDROCHLORIDE) TABLET ONGOING [Concomitant]
  3. LORTAB (HYDROCODONE BITARTRATE, PARACETAMOL) ONGOING [Concomitant]
  4. NEURONTIN (GABAPENTIN) CAPSULE [Concomitant]
  5. GILENYA [Suspect]
     Dosage: OUNCE

REACTIONS (8)
  - Pyrexia [None]
  - Chills [None]
  - Rash [None]
  - Nasopharyngitis [None]
  - Monocyte percentage increased [None]
  - Neutrophil percentage increased [None]
  - Lymphopenia [None]
  - Herpes zoster [None]
